FAERS Safety Report 5761773-9 (Version None)
Quarter: 2008Q2

REPORT INFORMATION
  Report Type: 
  Country: None (occurrence: None)
  Receive Date: 20080606
  Receipt Date: 20080526
  Transmission Date: 20081010
  Serious: Yes (Hospitalization, Other)
  Sender: FDA-Public Use
  Company Number: US-PFIZER INC-2008045585

PATIENT
  Age: 11 Year
  Sex: Male

DRUGS (6)
  1. LITHIUM CARBONATE [Suspect]
  2. AMPHETAMINE SULFATE [Concomitant]
  3. GUANFACINE HYDROCHLORIDE [Concomitant]
  4. TOPIRAMATE [Concomitant]
  5. OLANZAPINE [Concomitant]
  6. SERTRALINE [Concomitant]

REACTIONS (5)
  - ABNORMAL BEHAVIOUR [None]
  - ATELECTASIS [None]
  - NEPHROTIC SYNDROME [None]
  - PLEURAL EFFUSION [None]
  - PULMONARY OEDEMA [None]
